FAERS Safety Report 13631493 (Version 1)
Quarter: 2017Q2

REPORT INFORMATION
  Report Type: Spontaneous
  Country: US (occurrence: US)
  Receive Date: 20170531
  Receipt Date: 20170531
  Transmission Date: 20170830
  Serious: No
  Sender: FDA-Public Use
  Company Number: US-ASTELLAS-1387716

PATIENT
  Sex: Male
  Weight: 94.89 kg

DRUGS (3)
  1. KLOR-CON [Concomitant]
     Active Substance: POTASSIUM CHLORIDE
  2. LOMOTIL (UNITED STATES) [Concomitant]
  3. TARCEVA [Suspect]
     Active Substance: ERLOTINIB HYDROCHLORIDE
     Indication: LUNG NEOPLASM MALIGNANT
     Route: 048
     Dates: start: 20140221, end: 20140414

REACTIONS (5)
  - Headache [Unknown]
  - Oral pain [Unknown]
  - Skin fissures [Unknown]
  - Rash [Unknown]
  - Diarrhoea [Unknown]
